FAERS Safety Report 7886847-8 (Version None)
Quarter: 2011Q4

REPORT INFORMATION
  Report Type: 
  Country: None (occurrence: None)
  Receive Date: 20111102
  Receipt Date: 20110712
  Transmission Date: 20120403
  Serious: Yes (Other)
  Sender: FDA-Public Use
  Company Number: US-AMGEN-USASP2011035290

PATIENT
  Age: 69 Year
  Sex: Female

DRUGS (1)
  1. ENBREL [Suspect]
     Indication: RHEUMATOID ARTHRITIS
     Dosage: 50 MG, QWK
     Dates: start: 20080701, end: 20110622

REACTIONS (5)
  - BRONCHIECTASIS [None]
  - RHEUMATOID ARTHRITIS [None]
  - SPUTUM DISCOLOURED [None]
  - BRONCHITIS [None]
  - RESPIRATORY TRACT INFECTION [None]
